FAERS Safety Report 8185466 (Version 2)
Quarter: 2014Q4

REPORT INFORMATION
  Report Type: Spontaneous
  Country: US (occurrence: US)
  Receive Date: 20111018
  Receipt Date: 20141125
  Transmission Date: 20150529
  Serious: Yes (Other)
  Sender: FDA-Public Use
  Company Number: US-ASTRAZENECA-2010SE48248

PATIENT
  Age: 53 Year
  Sex: Female

DRUGS (29)
  1. SYMBICORT [Suspect]
     Active Substance: BUDESONIDE\FORMOTEROL FUMARATE DIHYDRATE
     Indication: CHRONIC OBSTRUCTIVE PULMONARY DISEASE
     Dosage: 320/9 MCG TWO TIMES A DAY
     Route: 055
     Dates: start: 20101006
  2. ATACAND [Suspect]
     Active Substance: CANDESARTAN CILEXETIL
     Indication: HEART RATE ABNORMAL
     Route: 048
     Dates: start: 1993
  3. TOPROL XL [Suspect]
     Active Substance: METOPROLOL SUCCINATE
     Indication: HEART RATE INCREASED
     Route: 048
     Dates: start: 2013
  4. ALBUTEROL. [Concomitant]
     Active Substance: ALBUTEROL
     Indication: CHRONIC OBSTRUCTIVE PULMONARY DISEASE
     Dosage: AT MORNING
  5. IMDUR [Concomitant]
     Active Substance: ISOSORBIDE MONONITRATE
     Indication: CARDIAC DISORDER
     Route: 048
     Dates: start: 1993
  6. RYTHMOL SR [Concomitant]
     Active Substance: PROPAFENONE HYDROCHLORIDE
     Indication: CARDIAC DISORDER
     Route: 048
     Dates: start: 2005
  7. CARDIZEM [Concomitant]
     Active Substance: DILTIAZEM HYDROCHLORIDE
     Indication: CARDIAC DISORDER
     Route: 048
     Dates: start: 2005
  8. IPRATROPIUM BROMIDE WITH ALBUTEROL [Concomitant]
     Dosage: TWO TIMES A DAY
  9. XANAX [Concomitant]
     Active Substance: ALPRAZOLAM
     Indication: NERVOUS SYSTEM DISORDER
     Dosage: 2 MG DAILY AND AS REQUIRED
  10. CRESTOR [Suspect]
     Active Substance: ROSUVASTATIN CALCIUM
     Indication: BLOOD CHOLESTEROL ABNORMAL
     Route: 048
     Dates: start: 201410, end: 20141113
  11. ATACAND [Suspect]
     Active Substance: CANDESARTAN CILEXETIL
     Indication: HYPERTENSION
     Route: 048
     Dates: start: 1993
  12. JANUVIA [Concomitant]
     Active Substance: SITAGLIPTIN PHOSPHATE
     Indication: DIABETES MELLITUS
     Route: 048
     Dates: start: 201005
  13. SYMBICORT [Suspect]
     Active Substance: BUDESONIDE\FORMOTEROL FUMARATE DIHYDRATE
     Indication: CHRONIC OBSTRUCTIVE PULMONARY DISEASE
     Dosage: AT NIGHT
     Route: 055
  14. MYCALCIN [Concomitant]
     Dosage: DAILY
     Route: 045
  15. PROVENTIL [Concomitant]
     Active Substance: ALBUTEROL
     Dosage: AS REQUIRED
  16. NEXIUM [Concomitant]
     Active Substance: ESOMEPRAZOLE MAGNESIUM
     Indication: GASTROOESOPHAGEAL REFLUX DISEASE
     Route: 048
     Dates: start: 201005
  17. CARDIZEM [Concomitant]
     Active Substance: DILTIAZEM HYDROCHLORIDE
     Indication: CARDIAC DISORDER
  18. ZOLOFT [Concomitant]
     Active Substance: SERTRALINE HYDROCHLORIDE
     Route: 048
  19. ASPIRIN. [Concomitant]
     Active Substance: ASPIRIN
     Indication: CARDIAC DISORDER
  20. RESTASIS [Concomitant]
     Active Substance: CYCLOSPORINE
     Indication: DRY EYE
     Dosage: TWO TIMES A DAY
  21. GLIPIZIDE. [Concomitant]
     Active Substance: GLIPIZIDE
     Indication: DIABETES MELLITUS
  22. SYMBICORT [Suspect]
     Active Substance: BUDESONIDE\FORMOTEROL FUMARATE DIHYDRATE
     Indication: CHRONIC OBSTRUCTIVE PULMONARY DISEASE
     Dosage: 160 MCG BID
     Route: 055
     Dates: start: 201010
  23. GLIMEPIRIDE. [Concomitant]
     Active Substance: GLIMEPIRIDE
     Indication: DIABETES MELLITUS
     Route: 048
  24. AMOXICILLIN. [Concomitant]
     Active Substance: AMOXICILLIN
  25. TOPROL XL [Suspect]
     Active Substance: METOPROLOL SUCCINATE
     Indication: HEART RATE INCREASED
     Route: 048
     Dates: start: 2002, end: 2013
  26. TOPROL XL [Suspect]
     Active Substance: METOPROLOL SUCCINATE
     Indication: HEART RATE INCREASED
     Route: 048
     Dates: start: 201409, end: 2014
  27. IPRATROPIUM [Concomitant]
     Active Substance: IPRATROPIUM
     Indication: CHRONIC OBSTRUCTIVE PULMONARY DISEASE
     Dosage: AT MORNING
  28. LANTIS INSULIN [Concomitant]
     Indication: DIABETES MELLITUS
     Route: 058
  29. MVI [Concomitant]
     Active Substance: VITAMINS
     Dosage: DAILY

REACTIONS (12)
  - Abdominal discomfort [Unknown]
  - Nausea [Unknown]
  - Blood cholesterol abnormal [Unknown]
  - Drug dose omission [Unknown]
  - Heart rate increased [Unknown]
  - Off label use [Unknown]
  - Inappropriate schedule of drug administration [Unknown]
  - Nephrolithiasis [Recovered/Resolved]
  - Drug ineffective [Unknown]
  - Palpitations [Not Recovered/Not Resolved]
  - Myalgia [Recovering/Resolving]
  - Constipation [Recovered/Resolved]

NARRATIVE: CASE EVENT DATE: 2002
